FAERS Safety Report 5943444-9 (Version None)
Quarter: 2008Q4

REPORT INFORMATION
  Report Type: 
  Country: None (occurrence: None)
  Receive Date: 20081106
  Receipt Date: 20081029
  Transmission Date: 20090506
  Serious: Yes (Hospitalization)
  Sender: FDA-Public Use
  Company Number: GB-WATSON-2008-06437

PATIENT
  Age: 60 Year
  Sex: Female

DRUGS (3)
  1. FENTANYL CITRATE [Suspect]
     Indication: ANALGESIA
     Dosage: 1 MG X 1, INTRAOPERATIVE
     Route: 042
     Dates: start: 20080101
  2. FENTANYL CITRATE [Suspect]
     Indication: POSTOPERATIVE ANALGESIA
     Dosage: 2.5 MG BY INFUSION IN FIRST 36 HOURS POSTOPERATIVELY
     Route: 042
     Dates: start: 20080101
  3. PAROXETINE HCL [Suspect]
     Indication: DEPRESSION
     Dosage: UNK
     Route: 065

REACTIONS (2)
  - DRUG INTERACTION [None]
  - SEROTONIN SYNDROME [None]
